FAERS Safety Report 5658439-2 (Version None)
Quarter: 2008Q1

REPORT INFORMATION
  Report Type: 
  Country: None (occurrence: None)
  Receive Date: 20080310
  Receipt Date: 20070531
  Transmission Date: 20080703
  Serious: No
  Sender: FDA-Public Use
  Company Number: US-BAYER-200710543BCC

PATIENT
  Age: 69 Year
  Sex: Female
  Weight: 53 kg

DRUGS (3)
  1. ALEVE [Suspect]
     Indication: ARTHRALGIA
     Dosage: AS USED: 440/220 MG  UNIT DOSE: 220 MG
     Route: 048
     Dates: start: 20070218, end: 20070218
  2. LISINOPRIL [Concomitant]
     Dosage: TOTAL DAILY DOSE: 20 MG  UNIT DOSE: 20 MG
     Route: 048
  3. ATENOLOL [Concomitant]
     Dosage: TOTAL DAILY DOSE: 50 MG  UNIT DOSE: 50 MG
     Route: 048

REACTIONS (3)
  - DYSGEUSIA [None]
  - FOREIGN BODY TRAUMA [None]
  - THROAT IRRITATION [None]
